FAERS Safety Report 12183279 (Version 1)
Quarter: 2016Q1

REPORT INFORMATION
  Report Type: Spontaneous
  Country: US (occurrence: US)
  Receive Date: 20160316
  Receipt Date: 20160316
  Transmission Date: 20160526
  Serious: Yes (Hospitalization, Other)
  Sender: FDA-Public Use
  Company Number: US-PFIZER INC-2016150282

PATIENT
  Age: 70 Year
  Sex: Female

DRUGS (1)
  1. PANTOPRAZOLE [Suspect]
     Active Substance: PANTOPRAZOLE SODIUM
     Indication: OESOPHAGEAL HAEMORRHAGE
     Dates: start: 2009, end: 2010

REACTIONS (2)
  - Drug ineffective for unapproved indication [Unknown]
  - Haemorrhage [Unknown]

NARRATIVE: CASE EVENT DATE: 2009
